FAERS Safety Report 15855506 (Version 2)
Quarter: 2019Q2

REPORT INFORMATION
  Report Type: Report from Study
  Country: None (occurrence: US)
  Receive Date: 20190122
  Receipt Date: 20190404
  Transmission Date: 20190711
  Serious: Yes (Other)
  Sender: FDA-Public Use
  Company Number: US-ABBVIE-19K-163-2624862-00

PATIENT
  Age: 49 Year
  Sex: Female

DRUGS (2)
  1. HUMIRA [Suspect]
     Active Substance: ADALIMUMAB
     Indication: PSORIATIC ARTHROPATHY
     Route: 058
     Dates: start: 20190111, end: 20190111
  2. HUMIRA [Suspect]
     Active Substance: ADALIMUMAB
     Indication: PSORIASIS
     Route: 058
     Dates: start: 201901

REACTIONS (14)
  - Procedural site reaction [Recovered/Resolved]
  - Hypersensitivity [Recovered/Resolved]
  - Hypersensitivity [Unknown]
  - Papule [Recovered/Resolved]
  - Incision site complication [Recovered/Resolved]
  - Procedural site reaction [Recovered/Resolved]
  - Migraine [Unknown]
  - Injection site pain [Recovered/Resolved]
  - Urticaria [Recovered/Resolved]
  - Lipoma [Recovered/Resolved]
  - Vomiting [Unknown]
  - Weight decreased [Unknown]
  - Urticaria [Recovered/Resolved]
  - Nausea [Unknown]

NARRATIVE: CASE EVENT DATE: 2019
